FAERS Safety Report 16367253 (Version 2)
Quarter: 2025Q3

REPORT INFORMATION
  Report Type: Spontaneous
  Country: US (occurrence: US)
  Receive Date: 20190529
  Receipt Date: 20250911
  Transmission Date: 20251020
  Serious: Yes (Other)
  Sender: AUROBINDO
  Company Number: US-MYLANLABS-2019M1050443

PATIENT
  Age: 56 Year
  Sex: Female
  Weight: 57 kg

DRUGS (4)
  1. HYDROXYCHLOROQUINE [Interacting]
     Active Substance: HYDROXYCHLOROQUINE
     Indication: Sjogren^s syndrome
     Dosage: 400 MILLIGRAM, ONCE A DAY, DAILY DOSE: 7.01 MG/KG AND TOTAL CUMULATIVE DOSE 402 G
     Route: 065
  2. DOCETAXEL [Interacting]
     Active Substance: DOCETAXEL
     Indication: Invasive lobular breast carcinoma
     Route: 065
  3. CYCLOPHOSPHAMIDE [Interacting]
     Active Substance: CYCLOPHOSPHAMIDE
     Indication: Invasive lobular breast carcinoma
     Route: 065
  4. ANASTROZOLE [Interacting]
     Active Substance: ANASTROZOLE
     Indication: Invasive lobular breast carcinoma
     Route: 065

REACTIONS (5)
  - Overdose [Recovering/Resolving]
  - Toxicity to various agents [Recovering/Resolving]
  - Drug interaction [Recovering/Resolving]
  - Retinal toxicity [Recovering/Resolving]
  - Visual acuity reduced [Recovering/Resolving]
